FAERS Safety Report 9311719 (Version 1)
Quarter: 2013Q1

REPORT INFORMATION
  Report Type: Spontaneous
  Country: CZ (occurrence: None)
  Receive Date: 20130103
  Receipt Date: 20130103
  Transmission Date: 20140127
  Serious: Yes (Other)
  Sender: FDA-Public Use
  Company Number: VAL_01216_2012

PATIENT
  Age: 66 Year
  Sex: Male
  Weight: 71 kg

DRUGS (5)
  1. METOPROLOL (METOPROLOL) [Suspect]
     Indication: CARDIAC FAILURE
     Dates: start: 20120616
  2. ALISKIREN [Suspect]
     Indication: CARDIAC FAILURE
     Dosage: (DF)
     Route: 048
     Dates: start: 20121127, end: 20121217
  3. ENALAPRIL [Suspect]
     Indication: PRODUCT USED FOR UNKNOWN INDICATION
     Dosage: (DF)
     Dates: start: 20121016
  4. SPIRONOLACTONE (SPIRONOLACTONE) [Suspect]
     Indication: CARDIAC FAILURE
     Dates: start: 20120616
  5. FUROSEMIDE [Concomitant]

REACTIONS (2)
  - Hypotension [None]
  - Hyperkalaemia [None]
